FAERS Safety Report 21503962 (Version 1)
Quarter: 2022Q4

REPORT INFORMATION
  Report Type: Spontaneous
  Country: US (occurrence: US)
  Receive Date: 20221025
  Receipt Date: 20221025
  Transmission Date: 20230113
  Serious: No
  Sender: FDA-Public Use
  Company Number: US-MYLANLABS-2022M1114649

PATIENT
  Age: 90 Year
  Sex: Female

DRUGS (2)
  1. SPIRONOLACTONE [Suspect]
     Active Substance: SPIRONOLACTONE
     Indication: Product used for unknown indication
     Dosage: UNK
     Route: 065
  2. AYVAKIT [Suspect]
     Active Substance: AVAPRITINIB
     Indication: Systemic mastocytosis
     Dosage: 50 MILLIGRAM, (1 EVERY MONDAY, WEDNESDAY AND FRIDAY)
     Route: 065

REACTIONS (7)
  - Blood potassium abnormal [Unknown]
  - Gallbladder disorder [Unknown]
  - Illness [Unknown]
  - Asthenia [Unknown]
  - Drug hypersensitivity [Unknown]
  - Vomiting [Unknown]
  - Fluid retention [Unknown]
